FAERS Safety Report 5356538-6 (Version None)
Quarter: 2007Q2

REPORT INFORMATION
  Report Type: 
  Country: None (occurrence: None)
  Receive Date: 20070530
  Receipt Date: 20061116
  Transmission Date: 20071010
  Serious: Yes (Hospitalization)
  Sender: FDA-Public Use
  Company Number: US200608006864

PATIENT
  Age: 53 Year
  Sex: Male
  Weight: 104.3 kg

DRUGS (2)
  1. ZYPREXA [Suspect]
     Dosage: 20 MG, ORAL
     Route: 048
     Dates: start: 20030101
  2. PROZAC [Concomitant]

REACTIONS (2)
  - DIABETES MELLITUS [None]
  - HYPERGLYCAEMIA [None]
